FAERS Safety Report 5053398-8 (Version None)
Quarter: 2006Q2

REPORT INFORMATION
  Report Type: 
  Country: None (occurrence: None)
  Receive Date: 20060614
  Receipt Date: 20060321
  Transmission Date: 20061013
  Serious: Yes (Other)
  Sender: FDA-Public Use
  Company Number: 436401

PATIENT
  Age: 56 Year
  Sex: Female
  Weight: 92.1 kg

DRUGS (2)
  1. BONIVA [Suspect]
     Indication: DRUG USE FOR UNKNOWN INDICATION
     Dosage: 1 PER MONTH ORAL
     Route: 048
     Dates: start: 20051015
  2. ARIMIDEX [Concomitant]

REACTIONS (2)
  - DYSPEPSIA [None]
  - TINNITUS [None]
